FAERS Safety Report 6884008-2 (Version None)
Quarter: 2010Q3

REPORT INFORMATION
  Report Type: 
  Country: None (occurrence: None)
  Receive Date: 20100729
  Receipt Date: 20100715
  Transmission Date: 20110219
  Serious: Yes (Other)
  Sender: FDA-Public Use
  Company Number: PHHY2010AU44293

PATIENT

DRUGS (3)
  1. AFINITOR [Suspect]
     Indication: METASTATIC RENAL CELL CARCINOMA
     Dosage: 10 MG, QD
     Route: 048
     Dates: start: 20100615, end: 20100625
  2. AFINITOR [Suspect]
     Dosage: 5 MG, QD
     Route: 048
  3. ANTIHYPERTENSIVE DRUGS [Concomitant]
     Indication: HYPERTENSION
     Route: 048

REACTIONS (3)
  - DRUG TOXICITY [None]
  - RASH [None]
  - STOMATITIS [None]
